FAERS Safety Report 7809779-X (Version None)
Quarter: 2011Q4

REPORT INFORMATION
  Report Type: 
  Country: None (occurrence: None)
  Receive Date: 20111012
  Receipt Date: 20110927
  Transmission Date: 20120403
  Serious: Yes (Hospitalization)
  Sender: FDA-Public Use
  Company Number: JP-JNJFOC-20110804388

PATIENT
  Sex: Male

DRUGS (6)
  1. ZYRTEC [Suspect]
     Route: 048
  2. MUCOSTA [Suspect]
     Indication: ARTHRITIS
     Route: 048
     Dates: start: 20110715, end: 20110715
  3. FLUTICASONE PROPIONATE [Concomitant]
     Indication: ASTHMA
     Dosage: 200 MCG DAILY
     Route: 055
     Dates: start: 20110716
  4. LOXONIN [Suspect]
     Indication: ARTHRITIS
     Route: 048
     Dates: start: 20110715, end: 20110715
  5. ZYRTEC [Suspect]
     Indication: RHINITIS ALLERGIC
     Route: 048
     Dates: start: 20110328, end: 20110718
  6. THEOPHYLLINE [Concomitant]
     Indication: ASTHMA
     Route: 048
     Dates: start: 20110716

REACTIONS (4)
  - PYREXIA [None]
  - PLATELET COUNT DECREASED [None]
  - WHITE BLOOD CELL COUNT DECREASED [None]
  - RASH [None]
